FAERS Safety Report 25144830 (Version 1)
Quarter: 2025Q2

REPORT INFORMATION
  Report Type: Spontaneous
  Country: US (occurrence: None)
  Receive Date: 20250331
  Receipt Date: 20250331
  Transmission Date: 20250716
  Serious: Yes (unspecified)
  Sender: FDA-CTU
  Company Number: None

PATIENT
  Age: 91 Year
  Sex: Female
  Weight: 40 kg

DRUGS (2)
  1. PROLIA [Suspect]
     Active Substance: DENOSUMAB
     Indication: Osteoporosis postmenopausal
     Route: 058
     Dates: start: 20190614, end: 20240805
  2. FLUZONE [Concomitant]
     Active Substance: INFLUENZA A VIRUS A/CALIFORNIA/7/2009 X-179A (H1N1) ANTIGEN (FORMALDEHYDE INACTIVATED)\INFLUENZA A V
     Dates: start: 20240829, end: 20240829

REACTIONS (8)
  - Asthenia [None]
  - Malaise [None]
  - Hypoaesthesia [None]
  - Paraesthesia [None]
  - Decreased appetite [None]
  - Vomiting [None]
  - Nausea [None]
  - Hypoaesthesia [None]

NARRATIVE: CASE EVENT DATE: 20240912
